FAERS Safety Report 19962690 (Version 2)
Quarter: 2021Q4

REPORT INFORMATION
  Report Type: Spontaneous
  Country: DE (occurrence: DE)
  Receive Date: 20211018
  Receipt Date: 20211203
  Transmission Date: 20220303
  Serious: Yes (Other)
  Sender: FDA-Public Use
  Company Number: DE-NOVARTISPH-NVSC2021DE234380

PATIENT
  Age: 63 Year
  Sex: Female

DRUGS (7)
  1. PEMETREXED [Interacting]
     Active Substance: PEMETREXED
     Indication: Non-small cell lung cancer stage IV
     Dosage: UNK UNK, UNKNOWN
     Route: 065
     Dates: start: 201905, end: 202004
  2. CARBOPLATIN [Interacting]
     Active Substance: CARBOPLATIN
     Indication: Non-small cell lung cancer stage IV
     Dosage: UNK
     Route: 065
     Dates: start: 201905, end: 202004
  3. DOCETAXEL [Interacting]
     Active Substance: DOCETAXEL
     Indication: Non-small cell lung cancer stage IV
     Dosage: UNK UNK, UNKNOWN
     Route: 065
     Dates: start: 202004
  4. DOCETAXEL [Interacting]
     Active Substance: DOCETAXEL
     Indication: Neoplasm progression
  5. PEMBROLIZUMAB [Interacting]
     Active Substance: PEMBROLIZUMAB
     Indication: Non-small cell lung cancer stage IV
     Dosage: UNK
     Route: 065
     Dates: start: 201905, end: 202004
  6. RAMUCIRUMAB [Interacting]
     Active Substance: RAMUCIRUMAB
     Indication: Non-small cell lung cancer stage IV
     Dosage: UNK UNK, UNKNOWN
     Route: 065
     Dates: start: 202004
  7. RAMUCIRUMAB [Interacting]
     Active Substance: RAMUCIRUMAB
     Indication: Neoplasm progression

REACTIONS (5)
  - Non-small cell lung cancer stage IV [Unknown]
  - Malignant neoplasm progression [Unknown]
  - Drug interaction [Unknown]
  - Folliculitis [Recovered/Resolved]
  - Product use in unapproved indication [Unknown]
